FAERS Safety Report 20635087 (Version 1)
Quarter: 2022Q1

REPORT INFORMATION
  Report Type: Spontaneous
  Country: JP (occurrence: JP)
  Receive Date: 20220325
  Receipt Date: 20220325
  Transmission Date: 20220423
  Serious: Yes (Other)
  Sender: FDA-Public Use
  Company Number: JP-SA-2022SA095421

PATIENT
  Sex: Male

DRUGS (20)
  1. JEVTANA [Suspect]
     Active Substance: CABAZITAXEL
     Indication: Prostate cancer
     Dosage: 60 MG
     Route: 041
     Dates: start: 20200518
  2. JEVTANA [Suspect]
     Active Substance: CABAZITAXEL
     Dosage: 60 MG
     Route: 041
     Dates: start: 20200713
  3. JEVTANA [Suspect]
     Active Substance: CABAZITAXEL
     Dosage: 30 MG
     Route: 041
     Dates: start: 20211018
  4. JEVTANA [Suspect]
     Active Substance: CABAZITAXEL
     Dosage: 30 MG
     Route: 041
     Dates: start: 20211118
  5. DOCETAXEL [Suspect]
     Active Substance: DOCETAXEL
     Indication: Prostate cancer
     Dosage: 20 MG
     Route: 041
     Dates: start: 20180322
  6. DOCETAXEL [Suspect]
     Active Substance: DOCETAXEL
     Dosage: UNK
     Route: 041
     Dates: start: 20180702
  7. DOCETAXEL [Suspect]
     Active Substance: DOCETAXEL
     Dosage: UNK
     Route: 041
     Dates: start: 20180730
  8. DOCETAXEL [Suspect]
     Active Substance: DOCETAXEL
     Dosage: 60 MG
     Route: 041
     Dates: start: 20180827
  9. DOCETAXEL [Suspect]
     Active Substance: DOCETAXEL
     Dosage: 60 MG
     Route: 041
     Dates: start: 20181001
  10. DOCETAXEL [Suspect]
     Active Substance: DOCETAXEL
     Dosage: UNK
     Route: 041
     Dates: start: 20190117
  11. DOCETAXEL [Suspect]
     Active Substance: DOCETAXEL
     Dosage: 60 MG
     Route: 041
     Dates: start: 20190214
  12. DOCETAXEL [Suspect]
     Active Substance: DOCETAXEL
     Dosage: 60 MG
     Route: 041
     Dates: start: 20200106
  13. DOCETAXEL [Suspect]
     Active Substance: DOCETAXEL
     Dosage: 60 MG, Q4W
     Route: 041
     Dates: start: 20200203
  14. DOCETAXEL [Suspect]
     Active Substance: DOCETAXEL
     Dosage: UNK
     Route: 041
     Dates: start: 20200420
  15. DOCETAXEL [Suspect]
     Active Substance: DOCETAXEL
     Indication: Prostate cancer
     Dosage: 80 MG
     Route: 041
     Dates: start: 20180322
  16. DOCETAXEL [Suspect]
     Active Substance: DOCETAXEL
     Dosage: 80 MG
     Route: 041
     Dates: start: 20180507
  17. DOCETAXEL [Suspect]
     Active Substance: DOCETAXEL
     Dosage: 80 MG
     Route: 041
     Dates: start: 20180604
  18. DOCETAXEL [Suspect]
     Active Substance: DOCETAXEL
     Dosage: 70 MG
     Route: 041
     Dates: start: 20180702
  19. DOCETAXEL [Suspect]
     Active Substance: DOCETAXEL
     Dosage: 760 MG
     Route: 041
     Dates: start: 20180730
  20. PREDONINE [Concomitant]
     Active Substance: PREDNISOLONE
     Indication: Product used for unknown indication
     Route: 065

REACTIONS (17)
  - Osteomyelitis [Unknown]
  - Rhabdomyolysis [Unknown]
  - Immobile [Unknown]
  - Pneumonia aspiration [Unknown]
  - Hypoxia [Unknown]
  - Clostridium colitis [Unknown]
  - Febrile neutropenia [Recovering/Resolving]
  - Ileus paralytic [Unknown]
  - Face oedema [Unknown]
  - Fall [Unknown]
  - Physical deconditioning [Unknown]
  - Chills [Unknown]
  - Gingivitis [Recovering/Resolving]
  - Malaise [Recovering/Resolving]
  - Pyrexia [Recovering/Resolving]
  - Vomiting [Unknown]
  - Diarrhoea [Unknown]

NARRATIVE: CASE EVENT DATE: 20200817
